FAERS Safety Report 5312096-3 (Version None)
Quarter: 2007Q2

REPORT INFORMATION
  Report Type: 
  Country: None (occurrence: None)
  Receive Date: 20070430
  Receipt Date: 20060727
  Transmission Date: 20071010
  Serious: No
  Sender: FDA-Public Use
  Company Number: 2006UW15195

PATIENT
  Age: 76 Year
  Sex: Male
  Weight: 68 kg

DRUGS (8)
  1. NEXIUM [Suspect]
     Indication: PANCREATIC CYST
     Route: 048
     Dates: start: 20060701
  2. NEXIUM [Suspect]
     Indication: INTESTINAL CYST
     Route: 048
     Dates: start: 20060701
  3. TRAMADOL HCL [Concomitant]
  4. LORAZEPAM [Concomitant]
  5. SPIRIVA [Concomitant]
  6. SLUNISOLIDE [Concomitant]
  7. LORATADINE [Concomitant]
  8. DOXAZOSIN MESYLATE [Concomitant]

REACTIONS (1)
  - RASH MACULAR [None]
